FAERS Safety Report 5597000-5 (Version None)
Quarter: 2007Q4

REPORT INFORMATION
  Report Type: 
  Country: None (occurrence: None)
  Receive Date: 20071220
  Receipt Date: 20070629
  Transmission Date: 20080405
  Serious: Yes (Life-Threatening, Hospitalization)
  Sender: FDA-Public Use
  Company Number: 265073

PATIENT
  Age: 64 Year
  Sex: Male

DRUGS (1)
  1. NOVOLOG MIX 70/30 FLEXPEN (INSULIN ASPART) SUSPECTION FOR INJECTION, 1 [Suspect]
     Indication: INSULIN-REQUIRING TYPE II DIABETES MELLITUS
     Dosage: IE, SUBCUTANEOUS
     Route: 058

REACTIONS (1)
  - DIABETIC COMA [None]
